FAERS Safety Report 11196070 (Version 1)
Quarter: 2015Q2

REPORT INFORMATION
  Report Type: Spontaneous
  Country: CA (occurrence: CA)
  Receive Date: 20150617
  Receipt Date: 20150617
  Transmission Date: 20150821
  Serious: Yes (Disabling)
  Sender: FDA-Public Use
  Company Number: CA-TEVA-571377ACC

PATIENT
  Age: 76 Year
  Sex: Female
  Weight: 63 kg

DRUGS (5)
  1. LIPITOR [Concomitant]
     Active Substance: ATORVASTATIN CALCIUM
     Dosage: UNKNOWN FORM STRENGTH
     Route: 065
  2. LOSEC [Concomitant]
     Active Substance: OMEPRAZOLE
     Dosage: UNKNOWN FORM STRENGTH
     Route: 065
  3. CALTRATE [Concomitant]
     Active Substance: CALCIUM CARBONATE
     Dosage: UNKNOWN FORM STRENGTH
     Route: 065
  4. RAMIPRIL. [Suspect]
     Active Substance: RAMIPRIL
     Indication: HYPERTENSION
     Dosage: 5 MILLIGRAM DAILY;
     Route: 048
  5. ALPRAZOLAM. [Concomitant]
     Active Substance: ALPRAZOLAM
     Dosage: UNKNOWN FORM STRENGTH
     Route: 065

REACTIONS (5)
  - Fatigue [Recovered/Resolved]
  - Dysthymic disorder [Recovered/Resolved]
  - Arthralgia [Recovered/Resolved]
  - Product substitution issue [Recovered/Resolved]
  - Mood altered [Recovered/Resolved]
